FAERS Safety Report 6041438-9 (Version None)
Quarter: 2009Q1

REPORT INFORMATION
  Report Type: 
  Country: None (occurrence: None)
  Receive Date: 20090116
  Receipt Date: 20081013
  Transmission Date: 20090719
  Serious: No
  Sender: FDA-Public Use
  Company Number: US-BRISTOL-MYERS SQUIBB COMPANY-14370217

PATIENT
  Age: 29 Year
  Sex: Male

DRUGS (2)
  1. ABILIFY [Suspect]
     Indication: BIPOLAR DISORDER
     Dosage: 30MG, 2 DOSES. DECREASED DOSAGE TO 15MG
  2. CELEXA [Suspect]
     Indication: BIPOLAR DISORDER

REACTIONS (4)
  - CHILLS [None]
  - HYPERHIDROSIS [None]
  - SYNCOPE [None]
  - VOMITING [None]
